FAERS Safety Report 8819511 (Version 1)
Quarter: 2012Q4

REPORT INFORMATION
  Report Type: 
  Country: US (occurrence: US)
  Receive Date: 20120930
  Receipt Date: 20120930
  Transmission Date: 20130627
  Serious: Yes (Hospitalization, Other)
  Sender: FDA-Public Use
  Company Number: US-CELGENEUS-163-21880-12092442

PATIENT
  Age: 77 None
  Sex: Male

DRUGS (1)
  1. REVLIMID [Suspect]
     Indication: MULTIPLE MYELOMA
     Dosage: 18.75 Milligram
     Route: 048
     Dates: start: 20110321

REACTIONS (2)
  - Prostate cancer [Unknown]
  - Catheter site haemorrhage [Unknown]
